FAERS Safety Report 5704890-1 (Version None)
Quarter: 2008Q2

REPORT INFORMATION
  Report Type: 
  Country: None (occurrence: None)
  Receive Date: 20080414
  Receipt Date: 20080402
  Transmission Date: 20081010
  Serious: Yes (Other)
  Sender: FDA-Public Use
  Company Number: US-SANOFI-SYNTHELABO-A03200606398

PATIENT
  Sex: Male
  Weight: 81.6 kg

DRUGS (23)
  1. LEXAPRO [Concomitant]
     Indication: DRUG USE FOR UNKNOWN INDICATION
     Route: 048
     Dates: start: 20050101
  2. ASPIRIN [Concomitant]
     Indication: DRUG USE FOR UNKNOWN INDICATION
     Dosage: UNK
     Route: 048
  3. AMBIEN [Suspect]
     Indication: INSOMNIA
     Route: 048
     Dates: start: 20030101
  4. AMBIEN [Suspect]
     Route: 048
     Dates: end: 20061001
  5. PAXIL CR [Concomitant]
     Indication: DRUG USE FOR UNKNOWN INDICATION
     Dosage: UNK
     Route: 048
     Dates: start: 20030101
  6. CEFADROXIL [Concomitant]
     Route: 048
     Dates: start: 20060101
  7. MOBIC [Concomitant]
     Route: 048
     Dates: start: 20050101
  8. CEPHALEXIN [Concomitant]
     Route: 048
     Dates: start: 20050101
  9. ACETAMINOPHEN AND HYDROCODONE BITARTRATE [Concomitant]
     Dosage: 1 TO 2 TABLETS EVERY 4 HOURS
     Route: 048
     Dates: start: 20050101
  10. PROPOXYPHENE HCL AND ACETAMINOPHEN [Concomitant]
     Dosage: 1 TABLET EVERY 4 HOURS
     Route: 048
     Dates: start: 20050101
  11. NIASPAN [Concomitant]
     Route: 048
     Dates: start: 20050101
  12. CLARITIN-D [Concomitant]
     Route: 048
     Dates: start: 20050101
  13. IBUPROFEN [Concomitant]
     Route: 048
     Dates: start: 20050101
  14. PROTONIX [Concomitant]
     Route: 048
     Dates: start: 20050101
  15. FIBER-LAX [Concomitant]
     Route: 048
     Dates: start: 20050101
  16. ACETAMINOPHEN AND CODEINE PHOSPHATE #3 [Concomitant]
     Dosage: 1 TABLET 4 TIMES DAILY AS NEEDED
     Route: 048
     Dates: start: 20040101
  17. BIAXIN XL [Concomitant]
     Route: 048
     Dates: start: 20040101
  18. TRIMOX [Concomitant]
     Route: 048
     Dates: start: 20030101
  19. ZITHROMAX [Concomitant]
     Dosage: UNK
     Route: 048
     Dates: start: 20030101
  20. CLOTRIMAZOLE + BETAMETHASONE CREAM [Concomitant]
     Dosage: APPLY 2 TIMES DAILY TO TOES
     Route: 061
     Dates: start: 20030101
  21. LEVAQUIN [Concomitant]
     Dosage: UNK
     Route: 048
     Dates: start: 20030101
  22. PAXIL [Concomitant]
     Route: 048
     Dates: start: 20030101
  23. CLARINEX [Concomitant]
     Dosage: UNK
     Route: 048
     Dates: start: 20030101

REACTIONS (18)
  - ABNORMAL BEHAVIOUR [None]
  - ABNORMAL DREAMS [None]
  - AMNESIA [None]
  - DRUG INEFFECTIVE [None]
  - DRUG WITHDRAWAL CONVULSIONS [None]
  - FATIGUE [None]
  - HOMICIDE [None]
  - HYPERHIDROSIS [None]
  - INTENTIONAL OVERDOSE [None]
  - INTENTIONAL SELF-INJURY [None]
  - IRRITABILITY [None]
  - PHYSICAL ASSAULT [None]
  - RETCHING [None]
  - SCAR [None]
  - SEXUAL ABUSE [None]
  - SOMNAMBULISM [None]
  - SUICIDE ATTEMPT [None]
  - TREMOR [None]
